FAERS Safety Report 5938770-3 (Version None)
Quarter: 2008Q4

REPORT INFORMATION
  Report Type: 
  Country: None (occurrence: None)
  Receive Date: 20081103
  Receipt Date: 20081027
  Transmission Date: 20090506
  Serious: Yes (Hospitalization)
  Sender: FDA-Public Use
  Company Number: US-BAYER-200826747NA

PATIENT
  Age: 23 Year
  Sex: Female
  Weight: 57 kg

DRUGS (3)
  1. MIRENA [Suspect]
     Indication: CONTRACEPTION
     Route: 015
     Dates: start: 20060824
  2. OXYCODONE HCL [Concomitant]
     Indication: PAIN
  3. DIAZEPAM [Concomitant]
     Indication: PAIN

REACTIONS (9)
  - BLOOD URINE PRESENT [None]
  - DYSPAREUNIA [None]
  - GENITAL INFECTION BACTERIAL [None]
  - HEADACHE [None]
  - KIDNEY INFECTION [None]
  - MENORRHAGIA [None]
  - NEPHROLITHIASIS [None]
  - VAGINAL ODOUR [None]
  - VOMITING [None]
